FAERS Safety Report 8225992-4 (Version None)
Quarter: 2012Q1

REPORT INFORMATION
  Report Type: 
  Country: None (occurrence: None)
  Receive Date: 20120321
  Receipt Date: 20120316
  Transmission Date: 20120608
  Serious: Yes (Other)
  Sender: FDA-Public Use
  Company Number: US-PFIZER INC-2012070079

PATIENT
  Sex: Female
  Weight: 56.689 kg

DRUGS (1)
  1. VENLAFAXINE HCL [Suspect]
     Indication: MENOPAUSAL SYMPTOMS
     Dosage: 37.5 MG, DAILY
     Route: 048
     Dates: start: 20120217, end: 20120313

REACTIONS (3)
  - ANXIETY [None]
  - PANIC ATTACK [None]
  - URTICARIA [None]
